FAERS Safety Report 5355455-5 (Version None)
Quarter: 2007Q2

REPORT INFORMATION
  Report Type: 
  Country: None (occurrence: None)
  Receive Date: 20070611
  Receipt Date: 20070611
  Transmission Date: 20071010
  Serious: Yes (Other)
  Sender: FDA-Public Use
  Company Number: None

PATIENT
  Sex: Male
  Weight: 63.5036 kg

DRUGS (5)
  1. RISPERDAL [Suspect]
     Indication: BIPOLAR DISORDER
     Dosage: 2 MG BID PO
     Route: 048
     Dates: start: 20040510
  2. DEPAKOTE ER [Concomitant]
  3. WELLBUTRIN XL [Concomitant]
  4. LITHIUM CARBONATE [Concomitant]
  5. INSULIN [Concomitant]

REACTIONS (2)
  - BLOOD PROLACTIN INCREASED [None]
  - PITUITARY TUMOUR BENIGN [None]
